FAERS Safety Report 14137209 (Version 2)
Quarter: 2017Q4

REPORT INFORMATION
  Report Type: Report from Study
  Country: CA (occurrence: CA)
  Receive Date: 20171027
  Receipt Date: 20171206
  Transmission Date: 20180321
  Serious: Yes (Other)
  Sender: FDA-Public Use
  Company Number: CA-GLAXOSMITHKLINE-CA2017GSK164196

PATIENT
  Age: 67 Year
  Sex: Female

DRUGS (1)
  1. SALBUTAMOL SULPHATE [Suspect]
     Active Substance: ALBUTEROL SULFATE
     Indication: PRODUCT USED FOR UNKNOWN INDICATION
     Dosage: UNK

REACTIONS (5)
  - Anxiety [Unknown]
  - Pneumonia [Unknown]
  - Anal cancer [Unknown]
  - Hypertension [Unknown]
  - Visual impairment [Unknown]

NARRATIVE: CASE EVENT DATE: 201509
